FAERS Safety Report 6928044-6 (Version None)
Quarter: 2010Q3

REPORT INFORMATION
  Report Type: 
  Country: None (occurrence: None)
  Receive Date: 20100816
  Receipt Date: 20100816
  Transmission Date: 20110219
  Serious: Yes (Disabling, Other)
  Sender: FDA-Public Use
  Company Number: None

PATIENT
  Sex: Female
  Weight: 54.4316 kg

DRUGS (1)
  1. NIASPAN [Suspect]
     Indication: BLOOD CHOLESTEROL INCREASED
     Dosage: 1 500MG TAB NIGHTLY PO
     Route: 048
     Dates: start: 20100301, end: 20100501

REACTIONS (2)
  - CONDITION AGGRAVATED [None]
  - VITILIGO [None]
